FAERS Safety Report 18206691 (Version 2)
Quarter: 2020Q4

REPORT INFORMATION
  Report Type: Spontaneous
  Country: US (occurrence: US)
  Receive Date: 20200828
  Receipt Date: 20201223
  Transmission Date: 20210113
  Serious: No
  Sender: FDA-Public Use
  Company Number: US-PFIZER INC-2020331540

PATIENT
  Age: 11 Year
  Sex: Female
  Weight: 32.66 kg

DRUGS (1)
  1. GENOTROPIN [Suspect]
     Active Substance: SOMATROPIN
     Indication: GROWTH RETARDATION
     Dosage: UNK, ONCE A DAY (0.4 INJECTED NIGHTLY)
     Dates: start: 20200816, end: 202008

REACTIONS (4)
  - Pallor [Unknown]
  - Vomiting [Unknown]
  - Migraine [Recovered/Resolved]
  - Erythema [Unknown]

NARRATIVE: CASE EVENT DATE: 202008
